FAERS Safety Report 9769238 (Version 3)
Quarter: 2013Q4

REPORT INFORMATION
  Report Type: Report from Study
  Country: US (occurrence: US)
  Receive Date: 20131218
  Receipt Date: 20131231
  Transmission Date: 20140711
  Serious: Yes (Hospitalization)
  Sender: FDA-Public Use
  Company Number: US-ROCHE-1320262

PATIENT
  Age: 81 Year
  Sex: Male

DRUGS (3)
  1. ERLOTINIB [Suspect]
     Indication: HEPATOCELLULAR CARCINOMA
     Route: 065
  2. BEVACIZUMAB [Suspect]
     Indication: HEPATOCELLULAR CARCINOMA
     Route: 065
  3. LASIX [Concomitant]

REACTIONS (3)
  - Pneumonitis [Unknown]
  - Lung infiltration [Unknown]
  - Pleural effusion [Unknown]
